FAERS Safety Report 13229919 (Version 1)
Quarter: 2017Q1

REPORT INFORMATION
  Report Type: Spontaneous
  Country: US (occurrence: US)
  Receive Date: 20170213
  Receipt Date: 20170213
  Transmission Date: 20170428
  Serious: Yes (Hospitalization)
  Sender: FDA-Public Use
  Company Number: None

PATIENT
  Age: 68 Year
  Sex: Male

DRUGS (21)
  1. HCTZ [Concomitant]
     Active Substance: HYDROCHLOROTHIAZIDE
  2. WARFARIN [Concomitant]
     Active Substance: WARFARIN
  3. AMOX/KCLAV [Concomitant]
  4. DOXYCLYCL HYC [Concomitant]
  5. PRAMIPEXOLE. [Concomitant]
     Active Substance: PRAMIPEXOLE
  6. XOLAIR [Suspect]
     Active Substance: OMALIZUMAB
     Indication: ASTHMA
     Route: 058
     Dates: start: 20130503
  7. AZITHROMYCIN ANHYDROUS. [Concomitant]
     Active Substance: AZITHROMYCIN ANHYDROUS
  8. CARB/LEVO [Concomitant]
     Active Substance: CARBIDOPA\LEVODOPA
  9. VENTOLIN [Concomitant]
     Active Substance: ALBUTEROL SULFATE
  10. AZILECT [Concomitant]
     Active Substance: RASAGILINE MESYLATE
  11. ENOXAPARIN [Concomitant]
     Active Substance: ENOXAPARIN
  12. PREDNISONE. [Concomitant]
     Active Substance: PREDNISONE
  13. TAMIFLU [Concomitant]
     Active Substance: OSELTAMIVIR PHOSPHATE
  14. LOSARTAN POT [Concomitant]
     Active Substance: LOSARTAN POTASSIUM
  15. SMZ/TMP DS [Concomitant]
     Active Substance: SULFAMETHOXAZOLE\TRIMETHOPRIM
  16. OMEPRAZOLE. [Concomitant]
     Active Substance: OMEPRAZOLE
  17. SPIRIVA [Concomitant]
     Active Substance: TIOTROPIUM BROMIDE MONOHYDRATE
  18. EPINEPHRINE. [Concomitant]
     Active Substance: EPINEPHRINE
  19. MONTELUKAST [Concomitant]
     Active Substance: MONTELUKAST SODIUM
  20. CEFUROXIME. [Concomitant]
     Active Substance: CEFUROXIME
  21. LOVASTATIN. [Concomitant]
     Active Substance: LOVASTATIN

REACTIONS (1)
  - Sepsis [None]

NARRATIVE: CASE EVENT DATE: 20170201
